FAERS Safety Report 20702547 (Version 1)
Quarter: 2022Q2

REPORT INFORMATION
  Report Type: Spontaneous
  Country: US (occurrence: US)
  Receive Date: 20220412
  Receipt Date: 20220412
  Transmission Date: 20220721
  Serious: No
  Sender: FDA-Public Use
  Company Number: US-PFIZER INC-202200186275

PATIENT
  Age: 61 Year
  Sex: Female

DRUGS (7)
  1. IBRANCE [Suspect]
     Active Substance: PALBOCICLIB
     Dosage: 100 MG, CYCLIC (DAILY FOR 21 DAYS ON, FOLLOWED BY 7 DAYS OFF)
     Route: 048
     Dates: start: 2019
  2. FASLODEX [Suspect]
     Active Substance: FULVESTRANT
     Dosage: UNK
  3. VITAMIN B12 [Concomitant]
     Active Substance: CYANOCOBALAMIN
     Dosage: UNK
  4. PROBIOTICS NOS [Concomitant]
     Active Substance: PROBIOTICS NOS
     Dosage: UNK
  5. OMEGA-3 FATTY ACIDS [Concomitant]
     Active Substance: OMEGA-3 FATTY ACIDS
     Dosage: UNK
  6. VITAMIN D3 [Concomitant]
     Active Substance: CHOLECALCIFEROL
     Dosage: UNK
  7. GENERAL NUTRIENTS;MINERALS NOS [Concomitant]
     Dosage: UNK

REACTIONS (14)
  - Malaise [Not Recovered/Not Resolved]
  - Fatigue [Not Recovered/Not Resolved]
  - Cystitis [Not Recovered/Not Resolved]
  - Stomatitis [Unknown]
  - Alopecia [Unknown]
  - Madarosis [Unknown]
  - Hair texture abnormal [Unknown]
  - Dysstasia [Unknown]
  - Back pain [Unknown]
  - Nasopharyngitis [Unknown]
  - White blood cell count abnormal [Unknown]
  - Sexual dysfunction [Unknown]
  - Anorgasmia [Unknown]
  - Fatigue [Unknown]
